FAERS Safety Report 5200258-5 (Version None)
Quarter: 2007Q1

REPORT INFORMATION
  Report Type: 
  Country: None (occurrence: None)
  Receive Date: 20070105
  Receipt Date: 20061002
  Transmission Date: 20070707
  Serious: Yes (Hospitalization)
  Sender: FDA-Public Use
  Company Number: US-BOEHRINGER INGELHEIM PHARMACEUTICALS, INC.-2006-BP-10273BP

PATIENT
  Age: 69 Year
  Sex: Male

DRUGS (6)
  1. FLOMAX [Suspect]
     Indication: BENIGN PROSTATIC HYPERPLASIA
     Route: 048
     Dates: start: 20051130, end: 20060801
  2. FLOMAX [Suspect]
     Indication: PROSTATE EXAMINATION ABNORMAL
  3. FLOMAX [Suspect]
     Indication: BLOOD URINE PRESENT
  4. SYNTHROID [Concomitant]
     Indication: THYROID DISORDER
     Route: 048
  5. ATENOLOL [Concomitant]
     Indication: BLOOD PRESSURE INCREASED
     Route: 048
  6. ENALAPRIL MALEATE [Concomitant]
     Indication: BLOOD PRESSURE INCREASED
     Dates: start: 20060601

REACTIONS (11)
  - ANXIETY [None]
  - ASTHENOPIA [None]
  - BLOOD URINE PRESENT [None]
  - HYPERACUSIS [None]
  - HYPERAESTHESIA [None]
  - INSOMNIA [None]
  - NERVOUSNESS [None]
  - NOCTURIA [None]
  - PHOTOPHOBIA [None]
  - VISION BLURRED [None]
  - WEIGHT INCREASED [None]
